FAERS Safety Report 21880394 (Version 4)
Quarter: 2025Q1

REPORT INFORMATION
  Report Type: Report from Study
  Country: US (occurrence: US)
  Receive Date: 20230118
  Receipt Date: 20250129
  Transmission Date: 20250409
  Serious: Yes (Other)
  Sender: TAKEDA
  Company Number: US-TAKEDA-2023TUS005578

PATIENT
  Sex: Female

DRUGS (1)
  1. PRUCALOPRIDE [Suspect]
     Active Substance: PRUCALOPRIDE
     Indication: Product used for unknown indication

REACTIONS (4)
  - Pneumonia [Unknown]
  - Autoimmune disorder [Unknown]
  - Gallbladder disorder [Unknown]
  - Product use issue [Unknown]
